FAERS Safety Report 4561400-2 (Version None)
Quarter: 2005Q1

REPORT INFORMATION
  Report Type: 
  Country: None (occurrence: None)
  Receive Date: 20050126
  Receipt Date: 20050107
  Transmission Date: 20050727
  Serious: Yes (Other)
  Sender: FDA-Public Use
  Company Number: US-ROCHE-392630

PATIENT
  Age: 65 Year
  Sex: Male

DRUGS (3)
  1. CAPECITABINE [Suspect]
     Route: 048
     Dates: start: 20040930, end: 20041108
  2. CELEBREX [Suspect]
     Route: 048
     Dates: start: 20040930, end: 20050104
  3. IRINOTECAN [Concomitant]
     Dosage: GIVEN ON 30 SEPT, 7 OCT, 21 OCT AND 28 OCT 2004
     Route: 042
     Dates: start: 20040930, end: 20041028

REACTIONS (3)
  - ARTERIAL OCCLUSIVE DISEASE [None]
  - ARTERIAL STENOSIS [None]
  - INTERMITTENT CLAUDICATION [None]
